FAERS Safety Report 7241680-5 (Version None)
Quarter: 2011Q1

REPORT INFORMATION
  Report Type: 
  Country: None (occurrence: None)
  Receive Date: 20110124
  Receipt Date: 20110113
  Transmission Date: 20110831
  Serious: Yes (Hospitalization, Other)
  Sender: FDA-Public Use
  Company Number: PHHY2010CA56658

PATIENT
  Sex: Male

DRUGS (2)
  1. SANDOSTATIN LAR [Suspect]
     Dosage: 40 MG, QMO
     Route: 030
  2. SANDOSTATIN LAR [Suspect]
     Indication: COLORECTAL CANCER
     Dosage: 40 MG, TIW
     Route: 030
     Dates: start: 20091102

REACTIONS (4)
  - HAEMOGLOBIN DECREASED [None]
  - WEIGHT DECREASED [None]
  - HAEMATOCHEZIA [None]
  - ULCER HAEMORRHAGE [None]
